FAERS Safety Report 8611126-0 (Version None)
Quarter: 2012Q3

REPORT INFORMATION
  Report Type: 
  Country: None (occurrence: None)
  Receive Date: 20120423
  Receipt Date: 20100415
  Transmission Date: 20120928
  Serious: Yes (Other)
  Sender: FDA-Public Use
  Company Number: PHEH2010US02907

PATIENT
  Age: 79 Year
  Sex: Male
  Weight: 93 kg

DRUGS (6)
  1. BLOOD TRANSFUSION, AUXILIARY PRODUCTS (NO INGREDIENTS/SUBSTANCES) [Concomitant]
  2. EXJADE [Suspect]
     Indication: MYELODYSPLASTIC SYNDROME
     Dosage: 500 MG, 3 TABLETS DAILY, ORAL
     Route: 048
     Dates: start: 20100215, end: 20100225
  3. EXJADE [Suspect]
     Indication: IRON OVERLOAD
     Dosage: 500 MG, 3 TABLETS DAILY, ORAL
     Route: 048
     Dates: start: 20100215, end: 20100225
  4. NEULASTA [Concomitant]
  5. DANAZOL [Concomitant]
  6. DESFERAL [Concomitant]

REACTIONS (3)
  - BLOOD UREA INCREASED [None]
  - RENAL FAILURE [None]
  - BLOOD CREATININE INCREASED [None]
